FAERS Safety Report 24664935 (Version 1)
Quarter: 2024Q4

REPORT INFORMATION
  Report Type: Spontaneous
  Country: EG (occurrence: EG)
  Receive Date: 20241126
  Receipt Date: 20241126
  Transmission Date: 20250114
  Serious: Yes (Other)
  Sender: HIKMA
  Company Number: EG-HIKMA PHARMACEUTICALS-EG-H14001-24-10846

PATIENT
  Age: 59 Year
  Sex: Female
  Weight: 59 kg

DRUGS (6)
  1. HERCEPTIN [Suspect]
     Active Substance: TRASTUZUMAB
     Indication: Breast cancer
     Dosage: 600 MILLIGRAM, 3W, CYCLE ONE
     Route: 041
     Dates: start: 20240903
  2. HERCEPTIN [Suspect]
     Active Substance: TRASTUZUMAB
     Dosage: 600 MILLIGRAM, 3W, CYCLE THREE, DAY ONE
     Route: 041
     Dates: start: 20241021
  3. CISPLATIN [Suspect]
     Active Substance: CISPLATIN
     Dosage: 100 MILLIGRAM, 3W, CYCLE THREE, DAY ONE
     Route: 041
     Dates: start: 20241021
  4. CISPLATIN [Suspect]
     Active Substance: CISPLATIN
     Indication: Breast cancer
     Dosage: 100 MILLIGRAM, DAY 1, FIRST CYCLE
     Route: 041
     Dates: start: 20240903
  5. PACLITAXEL [Suspect]
     Active Substance: PACLITAXEL
     Dosage: 315 MILLIGRAM, 3W, CYCLE THREE, DAY ONE
     Route: 041
     Dates: start: 20241021
  6. PACLITAXEL [Suspect]
     Active Substance: PACLITAXEL
     Indication: Breast cancer
     Dosage: 315 MILLIGRAM, DAY ONE, FIRST CYCLE
     Route: 041
     Dates: start: 20240903

REACTIONS (3)
  - Pain in extremity [Recovered/Resolved]
  - Hot flush [Recovered/Resolved]
  - Neuropathy peripheral [Recovered/Resolved]

NARRATIVE: CASE EVENT DATE: 20241022
